FAERS Safety Report 8103930-2 (Version None)
Quarter: 2012Q1

REPORT INFORMATION
  Report Type: 
  Country: None (occurrence: None)
  Receive Date: 20120201
  Receipt Date: 20120121
  Transmission Date: 20120608
  Serious: Yes (Hospitalization)
  Sender: FDA-Public Use
  Company Number: US-BAYER-2011-045441

PATIENT
  Age: 42 Year
  Sex: Female
  Weight: 81.633 kg

DRUGS (9)
  1. YAZ [Suspect]
     Indication: MENORRHAGIA
  2. NAPROXEN (ALEVE) [Concomitant]
     Indication: BACK PAIN
     Dosage: 2 TABLETS, QD
  3. YAZ [Suspect]
     Indication: UTERINE LEIOMYOMA
  4. MIDRIN [Concomitant]
  5. YAZ [Suspect]
  6. ZYRTEC [Concomitant]
     Indication: HYPERSENSITIVITY
     Dosage: 2 TABLETS WEEKLY
  7. YAZ [Suspect]
     Indication: PREMENSTRUAL SYNDROME
     Dosage: UNK
     Dates: start: 20090401, end: 20100301
  8. NABUMETONE [Concomitant]
     Indication: MYALGIA
  9. FLEXERIL [Concomitant]
     Indication: BACK PAIN
     Dosage: 1 TABLET

REACTIONS (7)
  - PULMONARY EMBOLISM [None]
  - ANXIETY [None]
  - ANHEDONIA [None]
  - DEEP VEIN THROMBOSIS [None]
  - PAIN [None]
  - DEPRESSION [None]
  - INJURY [None]
